FAERS Safety Report 4717391-4 (Version None)
Quarter: 2005Q3

REPORT INFORMATION
  Report Type: 
  Country: None (occurrence: None)
  Receive Date: 20050711
  Receipt Date: 20050311
  Transmission Date: 20060218
  Serious: No
  Sender: FDA-Public Use
  Company Number: A03200500716

PATIENT
  Age: 88 Year
  Sex: Male
  Weight: 68.0396 kg

DRUGS (6)
  1. UROXATRAL [Suspect]
     Indication: PROSTATIC DISORDER
     Dosage: 10 MG OD - ORAL
     Route: 048
     Dates: start: 20050310, end: 20050324
  2. ATENOLOL [Suspect]
     Dosage: 75 MG QD - ORAL
     Route: 048
  3. LEVOTHYROXINE [Concomitant]
  4. FUROSEMIDE [Concomitant]
  5. RAMIPRIL [Concomitant]
  6. ATORVASTATIN CALCIUM [Concomitant]

REACTIONS (6)
  - BLOOD PRESSURE INCREASED [None]
  - DIZZINESS [None]
  - DYSPNOEA [None]
  - MUSCLE SPASMS [None]
  - TENSION [None]
  - WEIGHT INCREASED [None]
